FAERS Safety Report 6537460-6 (Version None)
Quarter: 2010Q1

REPORT INFORMATION
  Report Type: 
  Country: None (occurrence: None)
  Receive Date: 20100107
  Receipt Date: 20091216
  Transmission Date: 20100710
  Serious: Yes (Hospitalization)
  Sender: FDA-Public Use
  Company Number: 2009SP042023

PATIENT
  Age: 15 Year
  Sex: Female

DRUGS (4)
  1. MIRTAZAPINE [Suspect]
     Indication: DRUG USE FOR UNKNOWN INDICATION
     Dosage: 30 MG
  2. FLUOXETINE [Suspect]
     Indication: BULIMIA NERVOSA
     Dosage: 20 MG ; 40 MG
  3. FLUOXETINE [Suspect]
     Indication: DEPRESSION
     Dosage: 20 MG ; 40 MG
  4. QUETAPINE [Concomitant]

REACTIONS (4)
  - INTENTIONAL OVERDOSE [None]
  - INTENTIONAL SELF-INJURY [None]
  - SUICIDAL BEHAVIOUR [None]
  - THERAPEUTIC RESPONSE DECREASED [None]
